FAERS Safety Report 12105671 (Version 1)
Quarter: 2016Q1

REPORT INFORMATION
  Report Type: Spontaneous
  Country: US (occurrence: US)
  Receive Date: 20160223
  Receipt Date: 20160223
  Transmission Date: 20160526
  Serious: No
  Sender: FDA-Public Use
  Company Number: US-SHIRE-US201601857

PATIENT
  Age: 22 Year
  Sex: Male

DRUGS (4)
  1. MULTIVITAMIN                       /07504101/ [Concomitant]
     Active Substance: VITAMINS
     Indication: NUTRITIONAL SUPPLEMENTATION
     Dosage: UNK, UNKNOWN
     Route: 048
     Dates: start: 20160212
  2. VYVANSE [Suspect]
     Active Substance: LISDEXAMFETAMINE DIMESYLATE
     Dosage: 50 MG, UNKNOWN
     Route: 048
     Dates: start: 2016
  3. ADVIL PM [Concomitant]
     Active Substance: DIPHENHYDRAMINE CITRATE\IBUPROFEN
     Indication: INSOMNIA
     Dosage: UNK, UNKNOWN
     Route: 048
     Dates: start: 20160212
  4. VYVANSE [Suspect]
     Active Substance: LISDEXAMFETAMINE DIMESYLATE
     Indication: ATTENTION DEFICIT/HYPERACTIVITY DISORDER
     Dosage: 30 MG, UNKNOWN
     Route: 048

REACTIONS (5)
  - Chest discomfort [Not Recovered/Not Resolved]
  - Euphoric mood [Recovered/Resolved]
  - Drug effect decreased [Recovered/Resolved]
  - Peripheral coldness [Not Recovered/Not Resolved]
  - Dry skin [Not Recovered/Not Resolved]

NARRATIVE: CASE EVENT DATE: 20160210
